FAERS Safety Report 10250268 (Version 2)
Quarter: 2015Q2

REPORT INFORMATION
  Report Type: Spontaneous
  Country: US (occurrence: US)
  Receive Date: 20140620
  Receipt Date: 20150518
  Transmission Date: 20150821
  Serious: Yes (Death, Life-Threatening, Other)
  Sender: FDA-Public Use
  Company Number: US-MERCK-1406USA009657

PATIENT
  Sex: Female
  Weight: 77.55 kg

DRUGS (1)
  1. JANUVIA [Suspect]
     Active Substance: SITAGLIPTIN PHOSPHATE
     Indication: TYPE 2 DIABETES MELLITUS
     Dosage: 100 MG, QD
     Route: 048
     Dates: start: 20120314, end: 20121201

REACTIONS (6)
  - Biopsy lung [Unknown]
  - Diabetic neuropathy [Unknown]
  - Pancreatic carcinoma [Fatal]
  - Abdominal pain [Unknown]
  - Lung adenocarcinoma [Unknown]
  - Diarrhoea [Unknown]

NARRATIVE: CASE EVENT DATE: 201211
